FAERS Safety Report 9258619 (Version 2)
Quarter: 2014Q1

REPORT INFORMATION
  Report Type: Spontaneous
  Country: US (occurrence: None)
  Receive Date: 20121212
  Receipt Date: 20130314
  Transmission Date: 20141002
  Serious: No
  Sender: FDA-Public Use
  Company Number: 1209USA008089

PATIENT
  Age: 65 Year
  Sex: Male

DRUGS (3)
  1. VICTRELIS [Suspect]
     Indication: HEPATITIS C
     Dosage: 4 DF, Q8H, ORAL
     Route: 048
     Dates: start: 20120702
  2. RIBAPAK (RIBAVIRIN) [Suspect]
  3. PEGASYS (INTERFERON ALFA-2A) [Suspect]

REACTIONS (3)
  - Hyperhidrosis [None]
  - Influenza like illness [None]
  - Chills [None]
